FAERS Safety Report 4792870-2 (Version None)
Quarter: 2005Q4

REPORT INFORMATION
  Report Type: 
  Country: None (occurrence: None)
  Receive Date: 20051010
  Receipt Date: 20050126
  Transmission Date: 20060501
  Serious: Yes (Other)
  Sender: FDA-Public Use
  Company Number: PHBS2005RU01460

PATIENT
  Age: 29 Year
  Sex: Male

DRUGS (6)
  1. MIACALCIN [Suspect]
     Indication: OSTEOPOROSIS
     Dosage: 200 IU, QD
     Route: 045
     Dates: start: 20040401, end: 20040901
  2. MIACALCIN [Suspect]
     Dosage: 200 IU, QD
     Route: 045
     Dates: start: 20050101, end: 20050101
  3. IMMUNOSUPPRESSIVE AGENTS [Concomitant]
  4. MILGAMMA [Concomitant]
  5. CALCIUM D3 [Concomitant]
  6. MIACALCIN [Suspect]
     Indication: OSTEOPOROSIS
     Dosage: 100 IU, EVERY OTHER DAY
     Route: 030
     Dates: start: 20040401

REACTIONS (3)
  - GUILLAIN-BARRE SYNDROME [None]
  - MYALGIA [None]
  - PARESIS [None]
